FAERS Safety Report 8112248-3 (Version None)
Quarter: 2012Q1

REPORT INFORMATION
  Report Type: 
  Country: None (occurrence: None)
  Receive Date: 20120203
  Receipt Date: 20120130
  Transmission Date: 20120608
  Serious: Yes (Other)
  Sender: FDA-Public Use
  Company Number: US-CELGENEUS-163-21660-12013098

PATIENT
  Sex: Female

DRUGS (2)
  1. ABRAXANE [Suspect]
     Route: 065
     Dates: start: 20110908, end: 20111122
  2. AVASTIN [Concomitant]
     Route: 065
     Dates: start: 20111201

REACTIONS (1)
  - ASCITES [None]
